FAERS Safety Report 5999749-9 (Version None)
Quarter: 2008Q4

REPORT INFORMATION
  Report Type: 
  Country: None (occurrence: None)
  Receive Date: 20081215
  Receipt Date: 20081203
  Transmission Date: 20090506
  Serious: Yes (Hospitalization, Other)
  Sender: FDA-Public Use
  Company Number: JP-PFIZER INC-2006075069

PATIENT

DRUGS (3)
  1. ALDACTONE [Interacting]
     Indication: OEDEMA
     Dosage: UNK
     Route: 048
  2. ENALAPRIL [Interacting]
     Dosage: UNK
     Route: 065
  3. DIGOXIN [Suspect]
     Route: 065

REACTIONS (4)
  - ALTERED STATE OF CONSCIOUSNESS [None]
  - AV DISSOCIATION [None]
  - DRUG INTERACTION [None]
  - HYPERKALAEMIA [None]
